FAERS Safety Report 9426826 (Version 1)
Quarter: 2013Q3

REPORT INFORMATION
  Report Type: Spontaneous
  Country: US (occurrence: US)
  Receive Date: 20130730
  Receipt Date: 20130730
  Transmission Date: 20140515
  Serious: No
  Sender: FDA-Public Use
  Company Number: US-SANOFI-AVENTIS-2013SA000519

PATIENT
  Age: 40 Year
  Sex: Female

DRUGS (3)
  1. AMBIEN CR [Suspect]
     Route: 048
  2. ZOLPIDEM TARTRATE [Suspect]
     Dates: start: 2005
  3. AMBIEN [Suspect]
     Route: 048

REACTIONS (8)
  - Anxiety [Unknown]
  - Personality change [Unknown]
  - Irritability [Unknown]
  - Hallucination [Unknown]
  - Chronic fatigue syndrome [Unknown]
  - Insomnia [Unknown]
  - Nervous system disorder [Unknown]
  - Aggression [Unknown]
